FAERS Safety Report 8860493 (Version 1)
Quarter: 2012Q4

REPORT INFORMATION
  Report Type: 
  Country: US (occurrence: US)
  Receive Date: 20121025
  Receipt Date: 20121025
  Transmission Date: 20130627
  Serious: Yes (Hospitalization)
  Sender: FDA-Public Use
  Company Number: US-BAYER-2012-109951

PATIENT
  Age: 19 Year
  Weight: 72.56 kg

DRUGS (7)
  1. YASMIN [Suspect]
  2. NAPROXEN [Concomitant]
  3. CYCLOBENZAPRINE [Concomitant]
  4. CLONIDINE [Concomitant]
  5. DILAUDID [Concomitant]
  6. TYLENOL [Concomitant]
  7. FLEXERIL [Concomitant]

REACTIONS (1)
  - Pulmonary embolism [None]
